FAERS Safety Report 7062380-0 (Version None)
Quarter: 2010Q4

REPORT INFORMATION
  Report Type: 
  Country: None (occurrence: None)
  Receive Date: 20101026
  Receipt Date: 20101018
  Transmission Date: 20110411
  Serious: Yes (Other)
  Sender: FDA-Public Use
  Company Number: GB-B.I. PHARMACEUTICALS,INC./RIDGEFIELD-2010-UK-00956UK

PATIENT
  Age: 64 Year
  Sex: Female
  Weight: 102 kg

DRUGS (9)
  1. PRADAXA [Suspect]
     Indication: HIP ARTHROPLASTY
     Route: 048
     Dates: start: 20100418, end: 20100423
  2. BENDROFLUMETHIAZIDE [Concomitant]
  3. CODEINE [Concomitant]
  4. FYBOGEL [Concomitant]
  5. ONDANSETRON [Concomitant]
  6. PARACETAMOL [Concomitant]
  7. QUINAPRIL [Concomitant]
  8. QVAR 40 [Concomitant]
  9. SIMVASTATIN [Concomitant]

REACTIONS (1)
  - PULMONARY EMBOLISM [None]
